FAERS Safety Report 10278771 (Version 1)
Quarter: 2014Q3

REPORT INFORMATION
  Report Type: Spontaneous
  Country: IL (occurrence: IL)
  Receive Date: 20140705
  Receipt Date: 20140705
  Transmission Date: 20150326
  Serious: Yes (Hospitalization)
  Sender: FDA-Public Use
  Company Number: IL-IPSEN BIOPHARMACEUTICALS, INC.-2014-3302

PATIENT
  Age: 68 Year
  Sex: Male

DRUGS (4)
  1. UNSPECIFIED MEDICATIONS FOR DIABETES [Concomitant]
     Indication: DIABETES MELLITUS
     Dosage: NOT REPORTED
     Route: 065
  2. UNSPECIFIED MEDICATIONS FOR TRIGLYCERIDES [Concomitant]
     Indication: BLOOD TRIGLYCERIDES
     Dosage: NOT REPORTED
     Route: 065
  3. DYSPORT 500 UNITES SPEYWOOD [Suspect]
     Active Substance: ABOBOTULINUMTOXINA
     Indication: SKIN WRINKLING
     Dosage: NOT REPORTED
     Route: 065
     Dates: start: 20140611, end: 20140611
  4. UNSPECIFIED MEDICATIONS FOR HYPERSENSITIVITY [Concomitant]
     Indication: HYPERSENSITIVITY
     Dosage: NOT REPORTED
     Route: 065

REACTIONS (2)
  - Facial paresis [Not Recovered/Not Resolved]
  - Inappropriate schedule of drug administration [Unknown]

NARRATIVE: CASE EVENT DATE: 20140615
